FAERS Safety Report 8307917-6 (Version None)
Quarter: 2012Q2

REPORT INFORMATION
  Report Type: 
  Country: None (occurrence: None)
  Receive Date: 20120424
  Receipt Date: 20120419
  Transmission Date: 20120825
  Serious: Yes (Hospitalization)
  Sender: FDA-Public Use
  Company Number: US-GLAXOSMITHKLINE-A0809588A

PATIENT
  Age: 59 Year
  Sex: Male

DRUGS (5)
  1. METFORMIN HCL [Concomitant]
  2. TENORMIN [Concomitant]
  3. ALBUTEROL [Concomitant]
  4. LISINOPRIL [Concomitant]
  5. AVANDIA [Suspect]
     Indication: DIABETES MELLITUS
     Dosage: 8MG PER DAY
     Route: 048
     Dates: start: 20000401, end: 20071001

REACTIONS (3)
  - MYOCARDIAL INFARCTION [None]
  - ISCHAEMIC CEREBRAL INFARCTION [None]
  - CEREBROVASCULAR ACCIDENT [None]
